FAERS Safety Report 19508074 (Version 2)
Quarter: 2021Q3

REPORT INFORMATION
  Report Type: Spontaneous
  Country: CN (occurrence: CN)
  Receive Date: 20210708
  Receipt Date: 20210712
  Transmission Date: 20211014
  Serious: Yes (Other)
  Sender: FDA-Public Use
  Company Number: CN-009507513-2107CHN001061

PATIENT
  Age: 63 Year
  Sex: Male
  Weight: 54 kg

DRUGS (3)
  1. KEYTRUDA [Suspect]
     Active Substance: PEMBROLIZUMAB
     Indication: HYPOPHARYNGEAL CANCER
     Dosage: ONCE (ALSO REPORTED AS ONCE DAILY), 200 MG
     Route: 041
     Dates: start: 20210616, end: 20210616
  2. AI SU [Suspect]
     Active Substance: DOCETAXEL
     Indication: HYPOPHARYNGEAL CANCER
     Dosage: ONCE (ALSO REPORTED AS ONCE DAILY), 120 MG (ALSO REPORTED AS 100MG)
     Route: 041
     Dates: start: 20210616, end: 20210616
  3. NUO XIN [Suspect]
     Active Substance: CISPLATIN
     Indication: HYPOPHARYNGEAL CANCER
     Dosage: 40 MG, ONCE DAILY
     Route: 041
     Dates: start: 20210616, end: 20210618

REACTIONS (4)
  - White blood cell count abnormal [Unknown]
  - White blood cell count decreased [Recovering/Resolving]
  - Neutrophil count abnormal [Unknown]
  - Neutrophil count decreased [Recovering/Resolving]

NARRATIVE: CASE EVENT DATE: 20210622
